FAERS Safety Report 6327340-3 (Version None)
Quarter: 2009Q3

REPORT INFORMATION
  Report Type: 
  Country: None (occurrence: None)
  Receive Date: 20090825
  Receipt Date: 20090813
  Transmission Date: 20100115
  Serious: Yes (Hospitalization)
  Sender: FDA-Public Use
  Company Number: FR-PFIZER INC-2009254140

PATIENT
  Age: 69 Year

DRUGS (1)
  1. SUTENT [Suspect]
     Dosage: 37.5 MG, 1X/DAY
     Route: 048
     Dates: start: 20090101, end: 20090410

REACTIONS (2)
  - DISORIENTATION [None]
  - ISCHAEMIC STROKE [None]
